FAERS Safety Report 16221845 (Version 1)
Quarter: 2019Q2

REPORT INFORMATION
  Report Type: Spontaneous
  Country: US (occurrence: US)
  Receive Date: 20190422
  Receipt Date: 20190422
  Transmission Date: 20190711
  Serious: No
  Sender: FDA-Public Use
  Company Number: US-ASTRAZENECA-2019SE59949

PATIENT
  Age: 55 Year
  Sex: Female

DRUGS (7)
  1. LOVAZA [Suspect]
     Active Substance: OMEGA-3-ACID ETHYL ESTERS
     Dosage: UNK
     Route: 065
  2. VYTORIN [Suspect]
     Active Substance: EZETIMIBE\SIMVASTATIN
     Dosage: EZETIMIBE 10, SIMVASTATIN 40, UNK
     Route: 065
  3. CELEBREX [Suspect]
     Active Substance: CELECOXIB
     Dosage: UNK
     Route: 065
  4. NASONEX [Suspect]
     Active Substance: MOMETASONE FUROATE
     Dosage: UNK
     Route: 065
  5. NEXIUM 24HR [Suspect]
     Active Substance: ESOMEPRAZOLE MAGNESIUM
     Dosage: UNK
     Route: 048
  6. CRESTOR [Suspect]
     Active Substance: ROSUVASTATIN CALCIUM
     Dosage: UNK
     Route: 048
  7. SINGULAIR [Suspect]
     Active Substance: MONTELUKAST SODIUM
     Dosage: UNK
     Route: 065

REACTIONS (1)
  - Drug hypersensitivity [Unknown]
